FAERS Safety Report 13963826 (Version 1)
Quarter: 2017Q3

REPORT INFORMATION
  Report Type: Spontaneous
  Country: US (occurrence: None)
  Receive Date: 20170913
  Receipt Date: 20170913
  Transmission Date: 20171128
  Serious: Yes (Other)
  Sender: FDA-Public Use
  Company Number: None

PATIENT
  Age: 47 Year
  Sex: Female
  Weight: 106.14 kg

DRUGS (8)
  1. BENZTROPINE [Concomitant]
     Active Substance: BENZTROPINE
  2. ADVIL [Concomitant]
     Active Substance: IBUPROFEN
  3. INVEGA [Suspect]
     Active Substance: PALIPERIDONE
  4. MIRTAZAPINE. [Concomitant]
     Active Substance: MIRTAZAPINE
  5. DEXILANT [Concomitant]
     Active Substance: DEXLANSOPRAZOLE
  6. CAPESE [Concomitant]
  7. INVEGA SUSTENNA [Suspect]
     Active Substance: PALIPERIDONE PALMITATE
  8. ZYPREXA [Concomitant]
     Active Substance: OLANZAPINE

REACTIONS (6)
  - Weight increased [None]
  - Injection site reaction [None]
  - Pain in extremity [None]
  - Restlessness [None]
  - Eye movement disorder [None]
  - Diarrhoea [None]

NARRATIVE: CASE EVENT DATE: 20170117
